FAERS Safety Report 11590479 (Version 1)
Quarter: 2015Q4

REPORT INFORMATION
  Report Type: Spontaneous
  Country: US (occurrence: US)
  Receive Date: 20151002
  Receipt Date: 20151002
  Transmission Date: 20160304
  Serious: Yes (Other)
  Sender: FDA-Public Use
  Company Number: US-ELI_LILLY_AND_COMPANY-US201509009008

PATIENT
  Age: 51 Year
  Sex: Male
  Weight: 100 kg

DRUGS (3)
  1. HUMAN INSULIN [Suspect]
     Active Substance: INSULIN HUMAN
     Indication: OVERDOSE
     Dosage: 1 IU/KG, UNK
     Route: 042
  2. HUMAN INSULIN [Suspect]
     Active Substance: INSULIN HUMAN
     Dosage: 1000 IU, EVERY HOUR
     Route: 042
  3. HUMAN INSULIN [Suspect]
     Active Substance: INSULIN HUMAN
     Dosage: 100 IU, EVERY HOUR
     Route: 042

REACTIONS (3)
  - Hyperinsulinaemia [Recovered/Resolved]
  - Off label use [Recovered/Resolved]
  - Hypoglycaemia [Recovered/Resolved]
